FAERS Safety Report 23150400 (Version 2)
Quarter: 2023Q4

REPORT INFORMATION
  Report Type: Spontaneous
  Country: JP (occurrence: JP)
  Receive Date: 20231106
  Receipt Date: 20231122
  Transmission Date: 20240110
  Serious: Yes (Hospitalization)
  Sender: FDA-Public Use
  Company Number: JP-Eisai-EC-2023-151888

PATIENT
  Age: 0 Day
  Sex: Female
  Weight: 1.847 kg

DRUGS (6)
  1. FYCOMPA [Suspect]
     Active Substance: PERAMPANEL
     Indication: Foetal exposure during pregnancy
     Dosage: FREQUENCY UNKNOWN
     Route: 064
     Dates: start: 20230118, end: 20230404
  2. LAMOTRIGINE [Suspect]
     Active Substance: LAMOTRIGINE
     Indication: Foetal exposure during pregnancy
     Route: 064
     Dates: start: 20190415, end: 20221218
  3. LAMOTRIGINE [Suspect]
     Active Substance: LAMOTRIGINE
     Dosage: FREQUENCY UNKNOWN
     Route: 064
     Dates: start: 20221219, end: 20230104
  4. LAMOTRIGINE [Suspect]
     Active Substance: LAMOTRIGINE
     Route: 064
     Dates: start: 20230105, end: 20230404
  5. CARBAMAZEPINE [Suspect]
     Active Substance: CARBAMAZEPINE
     Indication: Foetal exposure during pregnancy
     Route: 064
     Dates: start: 20140428, end: 20151220
  6. CARBAMAZEPINE [Suspect]
     Active Substance: CARBAMAZEPINE
     Route: 064
     Dates: start: 20151221, end: 20230404

REACTIONS (3)
  - Premature baby [Recovered/Resolved]
  - Low birth weight baby [Recovered/Resolved]
  - Foetal exposure during pregnancy [Unknown]

NARRATIVE: CASE EVENT DATE: 20230404
